FAERS Safety Report 15842821 (Version 1)
Quarter: 2019Q1

REPORT INFORMATION
  Report Type: Spontaneous
  Country: ES (occurrence: ES)
  Receive Date: 20190118
  Receipt Date: 20190118
  Transmission Date: 20190417
  Serious: Yes (Other)
  Sender: FDA-Public Use
  Company Number: ES-PFIZER INC-2019020460

PATIENT
  Age: 54 Year
  Sex: Female
  Weight: 66.8 kg

DRUGS (1)
  1. GABAPENTIN. [Suspect]
     Active Substance: GABAPENTIN
     Indication: BACK PAIN
     Dosage: 200 MG, UNK
     Dates: start: 20181211

REACTIONS (1)
  - Palatal oedema [Unknown]

NARRATIVE: CASE EVENT DATE: 20181220
